FAERS Safety Report 6178877-1 (Version None)
Quarter: 2009Q2

REPORT INFORMATION
  Report Type: 
  Country: None (occurrence: None)
  Receive Date: 20090505
  Receipt Date: 20090424
  Transmission Date: 20091009
  Serious: Yes (Disabling)
  Sender: FDA-Public Use
  Company Number: AU-PFIZER INC-2009187438

PATIENT

DRUGS (1)
  1. CHAMPIX [Suspect]
     Indication: SMOKING CESSATION THERAPY
     Dosage: UNK
     Route: 048
     Dates: start: 20090223

REACTIONS (7)
  - ABNORMAL DREAMS [None]
  - ACTIVITIES OF DAILY LIVING IMPAIRED [None]
  - BEDRIDDEN [None]
  - DIZZINESS [None]
  - HEADACHE [None]
  - MALAISE [None]
  - NAUSEA [None]
